FAERS Safety Report 6525005-6 (Version None)
Quarter: 2010Q1

REPORT INFORMATION
  Report Type: 
  Country: None (occurrence: None)
  Receive Date: 20100104
  Receipt Date: 20091221
  Transmission Date: 20100710
  Serious: Yes (Other)
  Sender: FDA-Public Use
  Company Number: PHHY2009US59248

PATIENT
  Age: 46 Year
  Sex: Male

DRUGS (6)
  1. IMATINIB [Suspect]
     Indication: CHRONIC MYELOID LEUKAEMIA
     Dosage: 400 MG DAILY
  2. IMATINIB [Suspect]
     Dosage: 600 MG DAILY
  3. IMATINIB [Suspect]
     Dosage: 400 MG DAILY
  4. IMATINIB [Suspect]
     Dosage: 400 MG DAILY
  5. IMATINIB [Suspect]
     Dosage: 500 MG DAILY
  6. IMATINIB [Suspect]
     Dosage: 600 MG DAILY

REACTIONS (12)
  - ALANINE AMINOTRANSFERASE INCREASED [None]
  - ASPARTATE AMINOTRANSFERASE INCREASED [None]
  - FEBRILE NEUTROPENIA [None]
  - HAEMOGLOBIN DECREASED [None]
  - HAEMOSIDEROSIS [None]
  - HEPATIC FIBROSIS [None]
  - HEPATOCELLULAR INJURY [None]
  - PHLEBOTOMY [None]
  - PLATELET COUNT DECREASED [None]
  - PYREXIA [None]
  - SERUM FERRITIN INCREASED [None]
  - WHITE BLOOD CELL COUNT DECREASED [None]
